FAERS Safety Report 9527978 (Version 2)
Quarter: 2014Q2

REPORT INFORMATION
  Report Type: Report from Study
  Country: CA (occurrence: CA)
  Receive Date: 20130917
  Receipt Date: 20140529
  Transmission Date: 20141212
  Serious: Yes (Life-Threatening)
  Sender: FDA-Public Use
  Company Number: CA-JNJFOC-20130906912

PATIENT
  Age: 64 Year
  Sex: Female
  Weight: 90.72 kg

DRUGS (1)
  1. STELARA [Suspect]
     Indication: PSORIASIS
     Dosage: 0, 4, 12, THEN Q 12 WEEKS??NO. OF INJECTION RECEIVED
     Route: 058
     Dates: start: 20130808

REACTIONS (5)
  - Presyncope [Unknown]
  - Flushing [Unknown]
  - Asthenia [Unknown]
  - Hypersensitivity [Unknown]
  - Hypertension [Unknown]
